FAERS Safety Report 10060418 (Version 3)
Quarter: 2014Q2

REPORT INFORMATION
  Report Type: Report from Study
  Country: US (occurrence: US)
  Receive Date: 20140404
  Receipt Date: 20140425
  Transmission Date: 20141212
  Serious: Yes (Death, Hospitalization)
  Sender: FDA-Public Use
  Company Number: US-PFIZER INC-2014095112

PATIENT
  Age: 61 Year
  Sex: Male

DRUGS (4)
  1. GABAPENTIN [Suspect]
     Dosage: UNK
  2. IBUPROFEN [Suspect]
     Dosage: UNK
  3. HYDROXYZINE PAMOATE [Suspect]
     Dosage: UNK
  4. PAROXETINE [Suspect]

REACTIONS (1)
  - Toxicity to various agents [Fatal]
